FAERS Safety Report 12413104 (Version 2)
Quarter: 2016Q2

REPORT INFORMATION
  Report Type: Report from Study
  Country: AU (occurrence: AU)
  Receive Date: 20160527
  Receipt Date: 20160614
  Transmission Date: 20160815
  Serious: Yes (Other)
  Sender: FDA-Public Use
  Company Number: AU-ABBVIE-16K-008-1634976-00

PATIENT
  Sex: Female

DRUGS (2)
  1. HUMIRA [Suspect]
     Active Substance: ADALIMUMAB
     Route: 058
  2. HUMIRA [Suspect]
     Active Substance: ADALIMUMAB
     Indication: PSORIATIC ARTHROPATHY
     Route: 058

REACTIONS (10)
  - Nerve compression [Recovering/Resolving]
  - Facet joint syndrome [Recovering/Resolving]
  - Depressed mood [Not Recovered/Not Resolved]
  - Negative thoughts [Not Recovered/Not Resolved]
  - Bursitis [Recovering/Resolving]
  - Musculoskeletal stiffness [Recovering/Resolving]
  - Peripheral swelling [Recovering/Resolving]
  - Eyelid cyst [Unknown]
  - Arthralgia [Not Recovered/Not Resolved]
  - Vertebral lesion [Recovering/Resolving]

NARRATIVE: CASE EVENT DATE: 2016
